FAERS Safety Report 21107176 (Version 1)
Quarter: 2022Q3

REPORT INFORMATION
  Report Type: Spontaneous
  Country: US (occurrence: None)
  Receive Date: 20220720
  Receipt Date: 20220720
  Transmission Date: 20221027
  Serious: No
  Sender: FDA-Public Use
  Company Number: None

PATIENT

DRUGS (2)
  1. BREO ELLIPTA [Suspect]
     Active Substance: FLUTICASONE FUROATE\VILANTEROL TRIFENATATE
  2. ALBUTEROL [Suspect]
     Active Substance: ALBUTEROL

REACTIONS (3)
  - Intercepted product prescribing error [None]
  - Product dispensing error [None]
  - Transcription medication error [None]
